FAERS Safety Report 7128834-3 (Version None)
Quarter: 2010Q4

REPORT INFORMATION
  Report Type: 
  Country: None (occurrence: None)
  Receive Date: 20101130
  Receipt Date: 20101119
  Transmission Date: 20110411
  Serious: Yes (Hospitalization)
  Sender: FDA-Public Use
  Company Number: DE-JNJFOC-20101106868

PATIENT
  Age: 63 Year
  Sex: Female
  Weight: 68 kg

DRUGS (2)
  1. RISPERDAL CONSTA [Suspect]
     Indication: SCHIZOPHRENIA
     Route: 030
     Dates: end: 20100701
  2. ARIPIPRAZOL [Concomitant]
     Indication: SCHIZOPHRENIA
     Route: 065
     Dates: start: 20101101

REACTIONS (1)
  - ANTIPSYCHOTIC DRUG LEVEL THERAPEUTIC [None]
